FAERS Safety Report 15848732 (Version 2)
Quarter: 2019Q1

REPORT INFORMATION
  Report Type: Spontaneous
  Country: IT (occurrence: IT)
  Receive Date: 20190121
  Receipt Date: 20190129
  Transmission Date: 20190417
  Serious: Yes (Hospitalization, Other)
  Sender: FDA-Public Use
  Company Number: IT-JNJFOC-20190118246

PATIENT
  Age: 36 Year
  Sex: Male

DRUGS (3)
  1. HALOPERIDOL DECANOATE. [Suspect]
     Active Substance: HALOPERIDOL DECANOATE
     Indication: SCHIZOPHRENIA
     Route: 030
  2. ARIPIPRAZOLE. [Suspect]
     Active Substance: ARIPIPRAZOLE
     Indication: PRODUCT USED FOR UNKNOWN INDICATION
     Route: 065
  3. ARIPIPRAZOLE. [Suspect]
     Active Substance: ARIPIPRAZOLE
     Indication: PRODUCT USED FOR UNKNOWN INDICATION
     Dosage: 10.0 MG EVERY 0.5 DAYS
     Route: 065

REACTIONS (7)
  - Lethargy [Unknown]
  - Condition aggravated [Recovering/Resolving]
  - Neuroleptic malignant syndrome [Recovering/Resolving]
  - Hypernatraemia [Recovered/Resolved]
  - Central nervous system lesion [Recovered/Resolved]
  - Hypertonia [Unknown]
  - Cerebral disorder [Unknown]
